FAERS Safety Report 20915240 (Version 1)
Quarter: 2022Q2

REPORT INFORMATION
  Report Type: Spontaneous
  Country: US (occurrence: US)
  Receive Date: 20220604
  Receipt Date: 20220604
  Transmission Date: 20220721
  Serious: No
  Sender: FDA-Public Use
  Company Number: US-SA-SAC20220526001911

PATIENT
  Age: 59 Year
  Sex: Female
  Weight: 112 kg

DRUGS (22)
  1. GLIMEPIRIDE [Suspect]
     Active Substance: GLIMEPIRIDE
     Indication: Product used for unknown indication
     Dosage: UNKNOWN
     Route: 065
  2. MIFEPRISTONE [Suspect]
     Active Substance: MIFEPRISTONE
     Indication: Cushing^s syndrome
     Dosage: 900 MG, QD
     Dates: start: 20201211, end: 20201227
  3. MIFEPRISTONE [Suspect]
     Active Substance: MIFEPRISTONE
     Dosage: 600 MG, QD
     Route: 048
     Dates: start: 20201228, end: 20210102
  4. MIFEPRISTONE [Suspect]
     Active Substance: MIFEPRISTONE
     Dosage: 300 MG
     Route: 048
     Dates: start: 20210125, end: 20210314
  5. MIFEPRISTONE [Suspect]
     Active Substance: MIFEPRISTONE
     Dosage: 300 MG
     Route: 048
     Dates: start: 20210315, end: 20210323
  6. MIFEPRISTONE [Suspect]
     Active Substance: MIFEPRISTONE
     Dosage: 300 MG
     Route: 048
     Dates: start: 20210324, end: 2021
  7. ARIPIPRAZOLE [Concomitant]
     Active Substance: ARIPIPRAZOLE
  8. PIOGLITAZONE [Concomitant]
     Active Substance: PIOGLITAZONE
  9. ZOLPIDEM [Concomitant]
     Active Substance: ZOLPIDEM TARTRATE
  10. FENOFIBRATE [Concomitant]
     Active Substance: FENOFIBRATE
  11. LISINOPRIL [Concomitant]
     Active Substance: LISINOPRIL
  12. LORAZEPAM [Concomitant]
     Active Substance: LORAZEPAM
  13. METOPROLOL [Concomitant]
     Active Substance: METOPROLOL
  14. OZEMPIC [Concomitant]
     Active Substance: SEMAGLUTIDE
  15. PRAVASTATIN [Concomitant]
     Active Substance: PRAVASTATIN
  16. OMEPRAZOLE [Concomitant]
     Active Substance: OMEPRAZOLE
  17. MIRTAZAPINE [Concomitant]
     Active Substance: MIRTAZAPINE
  18. TRESIBA [Concomitant]
     Active Substance: INSULIN DEGLUDEC
  19. VASCEPA [Concomitant]
     Active Substance: ICOSAPENT ETHYL
  20. BUPROPION [Concomitant]
     Active Substance: BUPROPION
  21. ONDANSETRON [Concomitant]
     Active Substance: ONDANSETRON
  22. GABAPENTIN [Concomitant]
     Active Substance: GABAPENTIN

REACTIONS (2)
  - Glomerular filtration rate increased [Unknown]
  - Blood triglycerides increased [Unknown]

NARRATIVE: CASE EVENT DATE: 20220507
